FAERS Safety Report 4467031-7 (Version None)
Quarter: 2004Q4

REPORT INFORMATION
  Report Type: 
  Country: None (occurrence: None)
  Receive Date: 20041001
  Receipt Date: 20041001
  Transmission Date: 20050328
  Serious: Yes (Other)
  Sender: FDA-Public Use
  Company Number: None

PATIENT
  Sex: Female
  Weight: 63.5036 kg

DRUGS (1)
  1. VIOXX [Suspect]
     Indication: BACK DISORDER
     Dosage: DAILY
     Dates: start: 20030801, end: 20040930

REACTIONS (6)
  - BLISTER [None]
  - FEELING ABNORMAL [None]
  - GASTROINTESTINAL DISORDER [None]
  - ONYCHOMYCOSIS [None]
  - PYREXIA [None]
  - RASH [None]
